FAERS Safety Report 20101635 (Version 1)
Quarter: 2021Q4

REPORT INFORMATION
  Report Type: Spontaneous
  Country: US (occurrence: None)
  Receive Date: 20211122
  Receipt Date: 20211122
  Transmission Date: 20220304
  Serious: Yes (Hospitalization)
  Sender: FDA-Public Use
  Company Number: None

PATIENT
  Age: 32 Year
  Sex: Female

DRUGS (1)
  1. OPSUMIT [Suspect]
     Active Substance: MACITENTAN
     Indication: Pulmonary hypertension
     Dosage: FREQUENCY : DAILY;?
     Route: 048
     Dates: start: 20200224

REACTIONS (10)
  - Asthenia [None]
  - Diarrhoea [None]
  - Nausea [None]
  - Vomiting [None]
  - Hypersensitivity [None]
  - Dyspnoea [None]
  - Pleuritic pain [None]
  - Sepsis [None]
  - Colitis [None]
  - Urinary tract infection [None]

NARRATIVE: CASE EVENT DATE: 20211102
